FAERS Safety Report 7637243-X (Version None)
Quarter: 2011Q3

REPORT INFORMATION
  Report Type: 
  Country: None (occurrence: None)
  Receive Date: 20110726
  Receipt Date: 20110715
  Transmission Date: 20111222
  Serious: Yes (Other)
  Sender: FDA-Public Use
  Company Number: BR-PFIZER INC-2011162980

PATIENT
  Age: 52 Year
  Sex: Male

DRUGS (2)
  1. DEPAKOTE [Concomitant]
     Dosage: 1000 MG, UNK
  2. PRISTIQ [Suspect]
     Dosage: 50 MG, UNK
     Route: 048
     Dates: start: 20090901, end: 20101201

REACTIONS (2)
  - AGITATION [None]
  - INFARCTION [None]
